FAERS Safety Report 6904145-3 (Version None)
Quarter: 2010Q3

REPORT INFORMATION
  Report Type: 
  Country: None (occurrence: None)
  Receive Date: 20100804
  Receipt Date: 20090324
  Transmission Date: 20110219
  Serious: No
  Sender: FDA-Public Use
  Company Number: US-PFIZER INC-2009157241

PATIENT
  Sex: Female
  Weight: 70.3 kg

DRUGS (2)
  1. LYRICA [Suspect]
     Indication: FIBROMYALGIA
     Dosage: 100 MG IN THE MORNING;200 MG AT NIGHT
     Route: 048
     Dates: start: 20080901
  2. PROZAC [Concomitant]

REACTIONS (1)
  - WEIGHT INCREASED [None]
